FAERS Safety Report 25542224 (Version 1)
Quarter: 2025Q3

REPORT INFORMATION
  Report Type: Report from Study
  Country: GB (occurrence: GB)
  Receive Date: 20250711
  Receipt Date: 20250711
  Transmission Date: 20251021
  Serious: Yes (Other)
  Sender: SAMSUNG BIOEPIS
  Company Number: GB-SAMSUNG BIOEPIS-SB-2025-04660

PATIENT
  Age: 40 Year
  Sex: Female

DRUGS (1)
  1. EPYSQLI [Suspect]
     Active Substance: ECULIZUMAB-AAGH
     Indication: Paroxysmal nocturnal haemoglobinuria
     Dates: start: 202501

REACTIONS (2)
  - Abortion spontaneous [Unknown]
  - Maternal exposure during pregnancy [Unknown]
